FAERS Safety Report 13613835 (Version 1)
Quarter: 2017Q2

REPORT INFORMATION
  Report Type: Spontaneous
  Country: US (occurrence: US)
  Receive Date: 20170606
  Receipt Date: 20170606
  Transmission Date: 20170830
  Serious: Yes (Hospitalization)
  Sender: FDA-Public Use
  Company Number: US-BEH-2017080974

PATIENT
  Age: 14 Year
  Sex: Female
  Weight: 29.48 kg

DRUGS (34)
  1. ZYRTEC [Concomitant]
     Active Substance: CETIRIZINE HYDROCHLORIDE
  2. ROBITUSSIN PEDIATRIC [Concomitant]
  3. FLONASE [Concomitant]
     Active Substance: FLUTICASONE PROPIONATE
  4. DIAZEPAM. [Concomitant]
     Active Substance: DIAZEPAM
  5. LORATADINE. [Concomitant]
     Active Substance: LORATADINE
  6. GABAPENTIN. [Concomitant]
     Active Substance: GABAPENTIN
  7. L-CARNITINE                        /00878601/ [Concomitant]
     Active Substance: LEVOCARNITINE
  8. DIPHENHYDRAMINE. [Concomitant]
     Active Substance: DIPHENHYDRAMINE
  9. CARAFATE [Concomitant]
     Active Substance: SUCRALFATE
  10. POLY-VI-SOL                        /00200301/ [Concomitant]
  11. VITAMIN D3 [Concomitant]
     Active Substance: CHOLECALCIFEROL
  12. IBUPROFEN. [Concomitant]
     Active Substance: IBUPROFEN
  13. AUGMENTIN [Concomitant]
     Active Substance: AMOXICILLIN\CLAVULANATE POTASSIUM
  14. LAMOTRIGINE. [Concomitant]
     Active Substance: LAMOTRIGINE
  15. MILK OF MAGNESIA [Concomitant]
     Active Substance: MAGNESIUM HYDROXIDE
  16. HIZENTRA [Suspect]
     Active Substance: HUMAN IMMUNOGLOBULIN G
     Indication: RETT SYNDROME
     Dosage: 8 G, QOW
     Route: 058
     Dates: start: 20160307
  17. EPINEPHRINE. [Concomitant]
     Active Substance: EPINEPHRINE
  18. SODIUM CHLORIDE. [Concomitant]
     Active Substance: SODIUM CHLORIDE
  19. PEPCID AC [Concomitant]
     Active Substance: FAMOTIDINE
  20. SIMETHICONE (DIMETHICONE) [Concomitant]
     Active Substance: DIMETHICONE
  21. PREVACID [Concomitant]
     Active Substance: LANSOPRAZOLE
  22. MEDIUM-CHAIN TRIGLYCERIDES [Concomitant]
     Active Substance: MEDIUM-CHAIN TRIGLYCERIDES
  23. ACETAMINOPHEN. [Concomitant]
     Active Substance: ACETAMINOPHEN
  24. PULMICORT TURBUHALER [Concomitant]
     Active Substance: BUDESONIDE
  25. LAMICTAL [Concomitant]
     Active Substance: LAMOTRIGINE
  26. DIASTAT ACUDIAL [Concomitant]
     Active Substance: DIAZEPAM
  27. TOBRAMYCIN. [Concomitant]
     Active Substance: TOBRAMYCIN
  28. HIZENTRA [Suspect]
     Active Substance: HUMAN IMMUNOGLOBULIN G
     Indication: ADJUSTMENT DISORDER
     Dosage: UNK
     Route: 058
  29. LMX                                /00033401/ [Concomitant]
  30. ALBUTEROL                          /00139501/ [Concomitant]
     Active Substance: ALBUTEROL
  31. OXYGEN. [Concomitant]
     Active Substance: OXYGEN
  32. BACLOFEN. [Concomitant]
     Active Substance: BACLOFEN
  33. FLUCONAZOLE. [Concomitant]
     Active Substance: FLUCONAZOLE
  34. VITAMIN C [Concomitant]
     Active Substance: ASCORBIC ACID

REACTIONS (2)
  - Pyrexia [Recovered/Resolved]
  - Heart rate increased [Recovered/Resolved]

NARRATIVE: CASE EVENT DATE: 20170512
